FAERS Safety Report 9070921 (Version 1)
Quarter: 2013Q1

REPORT INFORMATION
  Report Type: Spontaneous
  Country: US (occurrence: US)
  Receive Date: 20130129
  Receipt Date: 20130129
  Transmission Date: 20140127
  Serious: Yes (Hospitalization)
  Sender: FDA-Public Use
  Company Number: US-GLAXOSMITHKLINE-A1009770A

PATIENT
  Age: 69 Year
  Sex: Female
  Weight: 69.5 kg

DRUGS (10)
  1. VOTRIENT [Suspect]
     Indication: HEPATIC CANCER
     Dosage: 400MG PER DAY
     Route: 048
  2. ZOLINZA [Suspect]
     Indication: PRODUCT USED FOR UNKNOWN INDICATION
  3. COREG [Concomitant]
  4. PHENERGAN [Concomitant]
  5. NORVASC [Concomitant]
  6. SANDOSTATIN [Concomitant]
  7. PROCHLORPERAZINE [Concomitant]
  8. OMEPRAZOLE [Concomitant]
  9. ALTACE [Concomitant]
  10. IMODIUM [Concomitant]

REACTIONS (5)
  - Platelet transfusion [Unknown]
  - Platelet count decreased [Unknown]
  - Fatigue [Unknown]
  - Weight decreased [Unknown]
  - Alopecia [Unknown]
